FAERS Safety Report 6538274-3 (Version None)
Quarter: 2010Q1

REPORT INFORMATION
  Report Type: 
  Country: None (occurrence: None)
  Receive Date: 20100112
  Receipt Date: 20100112
  Transmission Date: 20100710
  Serious: No
  Sender: FDA-Public Use
  Company Number: None

PATIENT
  Age: 66 Year
  Sex: Female
  Weight: 104.3273 kg

DRUGS (1)
  1. ACTONEL [Suspect]
     Indication: BONE DENSITY DECREASED
     Dosage: 150MG ONCE A MONTH PO
     Route: 048
     Dates: start: 20091004, end: 20091105

REACTIONS (6)
  - ARTHRALGIA [None]
  - BONE PAIN [None]
  - EMOTIONAL DISORDER [None]
  - MENTAL DISORDER [None]
  - MOBILITY DECREASED [None]
  - MYALGIA [None]
